FAERS Safety Report 7943798-8 (Version None)
Quarter: 2011Q4

REPORT INFORMATION
  Report Type: 
  Country: None (occurrence: None)
  Receive Date: 20111128
  Receipt Date: 20111123
  Transmission Date: 20120403
  Serious: Yes (Life-Threatening, Hospitalization)
  Sender: FDA-Public Use
  Company Number: FR-ROCHE-744232

PATIENT
  Sex: Female
  Weight: 80 kg

DRUGS (7)
  1. METHOTREXATE [Concomitant]
     Dates: start: 20091001, end: 20100819
  2. VOLTAREN [Concomitant]
     Dosage: DRUG REPORTED AS VOLTARENE 75
  3. SPECIAFOLDINE [Concomitant]
  4. PREDNISONE TAB [Concomitant]
  5. MABTHERA [Suspect]
     Indication: RHEUMATOID ARTHRITIS
     Dosage: PERMANENTLY DISCONTINUED. FORM: VIAL, LAST DOSE PRIOR TO EVENT: 04 AUGUST 2010, FREQUENCY: Q2S/Q6M.
     Route: 042
     Dates: start: 20091222, end: 20100804
  6. ACETAMINOPHEN W/ PROPOXYPHENE HCL [Concomitant]
  7. LEXOMIL [Concomitant]

REACTIONS (1)
  - NEUTROPENIA [None]
